FAERS Safety Report 24761497 (Version 1)
Quarter: 2024Q4

REPORT INFORMATION
  Report Type: Spontaneous
  Country: US (occurrence: None)
  Receive Date: 20241220
  Receipt Date: 20241220
  Transmission Date: 20250115
  Serious: No
  Sender: Public
  Company Number: None

PATIENT
  Sex: Female

DRUGS (5)
  1. COSENTYX [Suspect]
     Active Substance: SECUKINUMAB
     Indication: Hidradenitis
     Dosage: OTHER FREQUENCY : 300MG ONCE WEEKLY;?
     Route: 058
     Dates: start: 20241210
  2. DALIRESP [Concomitant]
     Active Substance: ROFLUMILAST
  3. METFORMIN [Concomitant]
     Active Substance: METFORMIN HYDROCHLORIDE
  4. SPIRONOLACTONE [Concomitant]
     Active Substance: SPIRONOLACTONE
  5. XANAX [Concomitant]
     Active Substance: ALPRAZOLAM

REACTIONS (4)
  - Condition aggravated [None]
  - Nausea [None]
  - Vomiting [None]
  - Polymenorrhoea [None]
